FAERS Safety Report 8010055-3 (Version None)
Quarter: 2011Q4

REPORT INFORMATION
  Report Type: 
  Country: None (occurrence: None)
  Receive Date: 20111221
  Receipt Date: 20111206
  Transmission Date: 20120403
  Serious: Yes (Congenital Anomaly)
  Sender: FDA-Public Use
  Company Number: PNIS20110030

PATIENT
  Age: 33 Week
  Sex: Female
  Weight: 2.05 kg

DRUGS (5)
  1. TACROLIMUS [Suspect]
     Indication: MATERNAL EXPOSURE DURING PREGNANCY
     Dosage: UNK, UNK, TRANSPLACENTAL
     Route: 064
  2. PROPYLTHIOURACIL (PROPYLTHIOURACIL) (PROPYLTHIOURACIL) [Concomitant]
  3. CYCLOSPORINE [Suspect]
     Indication: MATERNAL EXPOSURE DURING PREGNANCY
     Dosage: UNK, UNK, TRANSPLACENTAL
     Route: 064
  4. PREDNISOLONE [Suspect]
     Indication: MATERNAL EXPOSURE DURING PREGNANCY
     Dosage: UNK, UNK, TRANSPLACENTAL
     Route: 064
  5. LEVOTHYROXINE SODIUM [Concomitant]

REACTIONS (9)
  - CEREBRAL VENTRICLE DILATATION [None]
  - CAESAREAN SECTION [None]
  - MICROCEPHALY [None]
  - DEVELOPMENTAL DELAY [None]
  - MATERNAL DRUGS AFFECTING FOETUS [None]
  - FOETAL GROWTH RESTRICTION [None]
  - OLIGOHYDRAMNIOS [None]
  - HYPOXIC-ISCHAEMIC ENCEPHALOPATHY [None]
  - PARTIAL SEIZURES [None]
